FAERS Safety Report 13305872 (Version 2)
Quarter: 2017Q2

REPORT INFORMATION
  Report Type: Spontaneous
  Country: US (occurrence: US)
  Receive Date: 20170308
  Receipt Date: 20170424
  Transmission Date: 20170830
  Serious: Yes (Hospitalization, Other)
  Sender: FDA-Public Use
  Company Number: US-AUROBINDO-AUR-APL-2017-30435

PATIENT
  Age: 77 Year
  Sex: Male

DRUGS (1)
  1. AMIODARONE 200MG [Suspect]
     Active Substance: AMIODARONE
     Indication: ATRIAL FIBRILLATION
     Dosage: 200 MG, UNK
     Route: 065

REACTIONS (8)
  - Insomnia [Recovering/Resolving]
  - Pruritus [Recovering/Resolving]
  - Ocular icterus [Recovering/Resolving]
  - Mixed liver injury [Recovering/Resolving]
  - Agitation [Recovering/Resolving]
  - Drug-induced liver injury [Recovering/Resolving]
  - Jaundice [Recovering/Resolving]
  - Yellow skin [Recovering/Resolving]
